FAERS Safety Report 7709227-4 (Version None)
Quarter: 2011Q3

REPORT INFORMATION
  Report Type: 
  Country: None (occurrence: None)
  Receive Date: 20110825
  Receipt Date: 20110819
  Transmission Date: 20111222
  Serious: Yes (Other)
  Sender: FDA-Public Use
  Company Number: JP-ROCHE-798302

PATIENT
  Age: 63 Year

DRUGS (1)
  1. CLONAZEPAM [Suspect]
     Dosage: DOSE FORM: MINUTE GRAIN NOTE: DOSAGE IS UNCERTAIN.
     Route: 048

REACTIONS (1)
  - ALTERED STATE OF CONSCIOUSNESS [None]
